FAERS Safety Report 25608288 (Version 1)
Quarter: 2025Q3

REPORT INFORMATION
  Report Type: Spontaneous
  Country: EU (occurrence: EU)
  Receive Date: 20250725
  Receipt Date: 20250725
  Transmission Date: 20251021
  Serious: Yes (Hospitalization, Disabling, Other)
  Sender: MERCK SHARP & DOHME LLC
  Company Number: EU-009507513-2409GRC007648

PATIENT
  Age: 70 Year
  Sex: Male

DRUGS (5)
  1. KEYTRUDA [Suspect]
     Active Substance: PEMBROLIZUMAB
     Indication: Laryngeal cancer recurrent
     Dosage: DOSE DESCRIPTION : 200 MILLIGRAM, Q3W?DAILY DOSE : 9.4 MILLIGRAM?REGIMEN DOSE : 200  MILLIGRAM
     Route: 065
     Dates: start: 202209, end: 202304
  2. PREDNISOLONE [Suspect]
     Active Substance: PREDNISOLONE
     Route: 065
     Dates: start: 2023, end: 20230712
  3. NEBIVOLOL HYDROCHLORIDE [Concomitant]
     Active Substance: NEBIVOLOL HYDROCHLORIDE
     Route: 065
  4. PLAVIX [Concomitant]
     Active Substance: CLOPIDOGREL BISULFATE
     Route: 065
  5. AMLOTEN [AMLODIPINE BESILATE] [Concomitant]
     Route: 065

REACTIONS (7)
  - Encephalitis autoimmune [Recovering/Resolving]
  - Hyperphagia [Unknown]
  - Psychotic disorder [Unknown]
  - Blood glucose decreased [Unknown]
  - Ill-defined disorder [Recovering/Resolving]
  - Cerebrovascular accident [Unknown]
  - Alcoholism [Unknown]

NARRATIVE: CASE EVENT DATE: 20230101
